FAERS Safety Report 7591976-2 (Version None)
Quarter: 2011Q3

REPORT INFORMATION
  Report Type: 
  Country: None (occurrence: None)
  Receive Date: 20110706
  Receipt Date: 20110627
  Transmission Date: 20111222
  Serious: Yes (Hospitalization, Other)
  Sender: FDA-Public Use
  Company Number: US-US-EMD SERONO, INC.-7001548

PATIENT
  Sex: Male
  Weight: 70 kg

DRUGS (6)
  1. REBIF [Suspect]
     Indication: MULTIPLE SCLEROSIS
     Route: 058
     Dates: start: 20090706
  2. COMBIVENT [Concomitant]
     Indication: CHRONIC OBSTRUCTIVE PULMONARY DISEASE
  3. LISINOPRIL [Concomitant]
     Indication: HYPERTENSION
  4. VERPAMIL HCL [Concomitant]
     Indication: HYPERTENSION
  5. UNSPECIFIED MEDICATIONS [Concomitant]
     Indication: HYPERTENSION
  6. BACLOFEN [Concomitant]
     Indication: MULTIPLE SCLEROSIS

REACTIONS (5)
  - MYOCARDIAL INFARCTION [None]
  - PERIPHERAL CIRCULATORY FAILURE [None]
  - FALL [None]
  - POST PROCEDURAL HAEMORRHAGE [None]
  - STRESS [None]
